FAERS Safety Report 14011390 (Version 1)
Quarter: 2017Q3

REPORT INFORMATION
  Report Type: Spontaneous
  Country: US (occurrence: US)
  Receive Date: 20170926
  Receipt Date: 20170926
  Transmission Date: 20171128
  Serious: Yes (Other)
  Sender: FDA-Public Use
  Company Number: US-HETERO CORPORATE-HET2017US00203

PATIENT
  Age: 28 Month
  Sex: Female

DRUGS (1)
  1. SILDENAFIL. [Suspect]
     Active Substance: SILDENAFIL
     Indication: PULMONARY HYPERTENSION
     Route: 065

REACTIONS (5)
  - Respiratory rate increased [Unknown]
  - Diarrhoea [Unknown]
  - Blindness [Unknown]
  - Clumsiness [None]
  - Blindness unilateral [None]
